FAERS Safety Report 12917230 (Version 1)
Quarter: 2016Q4

REPORT INFORMATION
  Report Type: Spontaneous
  Country: US (occurrence: US)
  Receive Date: 20161107
  Receipt Date: 20161107
  Transmission Date: 20170207
  Serious: No
  Sender: FDA-Public Use
  Company Number: US-JAZZ-2016-US-017530

PATIENT
  Sex: Female

DRUGS (11)
  1. CLARINEX [Concomitant]
     Active Substance: DESLORATADINE
  2. CLARITIN [Concomitant]
     Active Substance: LORATADINE
  3. CYCLOBENZAPRINE [Concomitant]
     Active Substance: CYCLOBENZAPRINE
  4. TRAMADOL HCL [Concomitant]
     Active Substance: TRAMADOL HYDROCHLORIDE
  5. DARVOCET [Concomitant]
     Active Substance: ACETAMINOPHEN\PROPOXYPHENE HYDROCHLORIDE
  6. TUMS EX [Concomitant]
     Active Substance: CALCIUM CARBONATE
  7. MACRODANTIN [Concomitant]
     Active Substance: NITROFURANTOIN
  8. MOBIC [Concomitant]
     Active Substance: MELOXICAM
  9. HYDROCODONE BITARTRATE AND ACETAMINOPHEN [Concomitant]
     Active Substance: ACETAMINOPHEN\HYDROCODONE BITARTRATE
  10. ESTRACE [Concomitant]
     Active Substance: ESTRADIOL
  11. XYREM [Suspect]
     Active Substance: SODIUM OXYBATE
     Indication: FIBROMYALGIA
     Dosage: 2.25 G, BID
     Route: 048
     Dates: start: 201004

REACTIONS (2)
  - Hypersensitivity [Unknown]
  - Dysphonia [Unknown]
